FAERS Safety Report 13250210 (Version 1)
Quarter: 2017Q1

REPORT INFORMATION
  Report Type: Spontaneous
  Country: TR (occurrence: TR)
  Receive Date: 20170218
  Receipt Date: 20170218
  Transmission Date: 20170428
  Serious: Yes (Disabling, Other)
  Sender: FDA-Public Use
  Company Number: TR-BION-005988

PATIENT

DRUGS (1)
  1. VALPROIC ACID UNKNOWN PRODUCT [Suspect]
     Active Substance: VALPROIC ACID
     Indication: EPILEPSY

REACTIONS (2)
  - Foetal exposure during pregnancy [Unknown]
  - Congenital renal disorder [Unknown]
